FAERS Safety Report 10628913 (Version 2)
Quarter: 2014Q4

REPORT INFORMATION
  Report Type: Spontaneous
  Country: US (occurrence: US)
  Receive Date: 20141205
  Receipt Date: 20141205
  Transmission Date: 20150529
  Serious: No
  Sender: FDA-Public Use
  Company Number: US-BRISTOL-MYERS SQUIBB COMPANY-21367636

PATIENT
  Age: 48 Year
  Sex: Female
  Weight: 50.79 kg

DRUGS (2)
  1. KENALOG-40 [Suspect]
     Active Substance: TRIAMCINOLONE ACETONIDE
     Indication: HYPERSENSITIVITY
     Dates: start: 20140820
  2. PROBIOTICA [Concomitant]
     Active Substance: PROBIOTICS NOS

REACTIONS (4)
  - Vaginal discharge [Unknown]
  - Dehydration [Unknown]
  - Pollakiuria [Unknown]
  - Contusion [Recovering/Resolving]

NARRATIVE: CASE EVENT DATE: 20140902
